FAERS Safety Report 24792530 (Version 1)
Quarter: 2024Q4

REPORT INFORMATION
  Report Type: Spontaneous
  Country: ES (occurrence: ES)
  Receive Date: 20241231
  Receipt Date: 20241231
  Transmission Date: 20250115
  Serious: Yes (Other)
  Sender: JOHNSON AND JOHNSON
  Company Number: None

PATIENT
  Age: 52 Year
  Sex: Female
  Weight: 60 kg

DRUGS (1)
  1. AMIVANTAMAB [Suspect]
     Active Substance: AMIVANTAMAB
     Indication: Lung neoplasm malignant
     Dosage: 1400 MG EN D?A 15 DE PRIMER CICLO
     Route: 042
     Dates: start: 20241203

REACTIONS (1)
  - Skin toxicity [Recovering/Resolving]

NARRATIVE: CASE EVENT DATE: 20241203
